FAERS Safety Report 9774908 (Version 1)
Quarter: 2013Q4

REPORT INFORMATION
  Report Type: Spontaneous
  Country: US (occurrence: US)
  Receive Date: 20131220
  Receipt Date: 20131220
  Transmission Date: 20140711
  Serious: No
  Sender: FDA-Public Use
  Company Number: US-GLAXOSMITHKLINE-A1012671A

PATIENT
  Age: 64 Year
  Sex: Male

DRUGS (2)
  1. AVODART [Suspect]
     Indication: PROSTATOMEGALY
     Dosage: .5MG PER DAY
     Dates: start: 2010
  2. RAPAFLO [Suspect]
     Indication: PRODUCT USED FOR UNKNOWN INDICATION
     Dates: start: 2011

REACTIONS (3)
  - Blood potassium increased [Not Recovered/Not Resolved]
  - Blood creatinine increased [Unknown]
  - Renal function test abnormal [Unknown]
